FAERS Safety Report 13572416 (Version 7)
Quarter: 2017Q4

REPORT INFORMATION
  Report Type: Report from Study
  Country: US (occurrence: US)
  Receive Date: 20170523
  Receipt Date: 20171030
  Transmission Date: 20180320
  Serious: Yes (Hospitalization, Other)
  Sender: FDA-Public Use
  Company Number: US-PFIZER INC-2017208255

PATIENT
  Age: 10 Year
  Sex: Male
  Weight: 29 kg

DRUGS (8)
  1. MERCAPTOPURINE. [Suspect]
     Active Substance: MERCAPTOPURINE
     Indication: ACUTE LYMPHOCYTIC LEUKAEMIA
     Dosage: 75 MG THREE PER WEEK AND 50 MG FOUR PER WEEK
     Route: 048
     Dates: start: 20170303
  2. RUXOLITINIB [Suspect]
     Active Substance: RUXOLITINIB
     Dosage: UNK
     Dates: start: 20170505
  3. CYCLOPHOSPHAMIDE. [Suspect]
     Active Substance: CYCLOPHOSPHAMIDE
     Indication: ACUTE LYMPHOCYTIC LEUKAEMIA
     Dosage: 1050 MG, DAYS 1, 29
     Route: 042
     Dates: start: 20170303
  4. PEGASPARGASE [Suspect]
     Active Substance: PEGASPARGASE
     Indication: ACUTE LYMPHOCYTIC LEUKAEMIA
     Dosage: 2625 MG, DAYS 15, 43
     Route: 042
     Dates: start: 20170317
  5. CYTARABINE. [Suspect]
     Active Substance: CYTARABINE
     Indication: ACUTE LYMPHOCYTIC LEUKAEMIA
     Dosage: 78 MG, DAYS 1-4, 8-11, 29-32, 36-39
     Route: 042
     Dates: start: 20170303
  6. VINCRISTINE SULFATE. [Suspect]
     Active Substance: VINCRISTINE SULFATE
     Indication: ACUTE LYMPHOCYTIC LEUKAEMIA
     Dosage: 1.6 MG, DAYS 15, 22, 43
     Route: 042
     Dates: start: 20170317
  7. RUXOLITINIB [Suspect]
     Active Substance: RUXOLITINIB
     Indication: ACUTE LYMPHOCYTIC LEUKAEMIA
     Dosage: 10 MG, 2X/DAY
     Route: 048
     Dates: start: 20170303
  8. METHOTREXATE SODIUM. [Suspect]
     Active Substance: METHOTREXATE SODIUM
     Indication: ACUTE LYMPHOCYTIC LEUKAEMIA
     Dosage: 15 MG, DAYS 1, 8, 15, 22
     Route: 037
     Dates: start: 20170303

REACTIONS (6)
  - Hypertension [Recovered/Resolved]
  - Anaemia [Recovered/Resolved]
  - Upper respiratory tract infection [Recovered/Resolved]
  - Lung infection [Recovering/Resolving]
  - Pancreatitis [Recovered/Resolved]
  - Thrombocytopenia [Recovered/Resolved]

NARRATIVE: CASE EVENT DATE: 20170421
